FAERS Safety Report 8268079-7 (Version None)
Quarter: 2012Q2

REPORT INFORMATION
  Report Type: 
  Country: None (occurrence: None)
  Receive Date: 20120409
  Receipt Date: 20120402
  Transmission Date: 20120825
  Serious: Yes (Death, Other)
  Sender: FDA-Public Use
  Company Number: US-CELGENEUS-163-21880-12010566

PATIENT
  Sex: Male

DRUGS (13)
  1. ISTODAX [Suspect]
     Indication: MULTIPLE MYELOMA
     Dosage: 19.9 MILLIGRAM
     Route: 041
     Dates: start: 20110930, end: 20111108
  2. ZOMETA [Concomitant]
     Indication: MULTIPLE MYELOMA
     Route: 065
  3. SOLU-MEDROL [Concomitant]
     Dosage: 40 MILLIGRAM
     Route: 041
  4. REVLIMID [Suspect]
     Indication: MULTIPLE MYELOMA
     Dosage: 15 MILLIGRAM
     Route: 048
     Dates: start: 20100128, end: 20111213
  5. CELEBREX [Concomitant]
     Dosage: 400 MILLIGRAM
     Route: 048
  6. MULTI-VITAMINS [Concomitant]
     Route: 048
  7. VELCADE [Concomitant]
     Dosage: 3.5 MILLIGRAM
     Route: 041
  8. RBC TRANSFUSION [Concomitant]
     Route: 065
  9. FOLIC ACID [Concomitant]
     Dosage: 5 MILLIGRAM
     Route: 048
  10. BACTRIM [Concomitant]
     Dosage: 80 MILLIGRAM
     Route: 048
  11. ACYCLOVIR [Concomitant]
     Dosage: 200 MILLIGRAM
     Route: 048
  12. OXYCODONE HCL [Concomitant]
     Dosage: 10 MILLIGRAM
     Route: 048
  13. OXYCONTIN [Concomitant]
     Dosage: 60 MILLIGRAM
     Route: 048

REACTIONS (6)
  - CEREBRAL HAEMORRHAGE [None]
  - HYPOTENSION [None]
  - THROMBOCYTOPENIA [None]
  - PANCYTOPENIA [None]
  - HYPERCALCAEMIA [None]
  - MULTIPLE MYELOMA [None]
